FAERS Safety Report 7371943-4 (Version None)
Quarter: 2011Q1

REPORT INFORMATION
  Report Type: 
  Country: None (occurrence: None)
  Receive Date: 20110324
  Receipt Date: 20110310
  Transmission Date: 20110831
  Serious: Yes (Death, Hospitalization)
  Sender: FDA-Public Use
  Company Number: DE-VALEANT-2011VX000782

PATIENT
  Sex: Female

DRUGS (1)
  1. TASMAR [Suspect]
     Route: 065
     Dates: start: 20090601

REACTIONS (2)
  - SUDDEN DEATH [None]
  - CARDIAC DISORDER [None]
